FAERS Safety Report 5932285-4 (Version None)
Quarter: 2008Q4

REPORT INFORMATION
  Report Type: 
  Country: None (occurrence: None)
  Receive Date: 20081028
  Receipt Date: 20081023
  Transmission Date: 20090506
  Serious: Yes (Other)
  Sender: FDA-Public Use
  Company Number: DE-JNJFOC-20081005956

PATIENT
  Age: 7 Decade
  Sex: Female

DRUGS (7)
  1. ABCIXIMAB [Suspect]
     Dosage: CONTINUOUS INFUSION
     Route: 042
  2. ABCIXIMAB [Suspect]
     Indication: MYOCARDIAL INFARCTION
     Route: 042
  3. HEPARIN [Concomitant]
     Dosage: CONTINUOUS INFUSION
  4. HEPARIN [Concomitant]
     Indication: DRUG USE FOR UNKNOWN INDICATION
  5. CLOPIDOGREL [Concomitant]
  6. CLOPIDOGREL [Concomitant]
     Indication: DRUG USE FOR UNKNOWN INDICATION
  7. ASPIRIN [Concomitant]
     Indication: DRUG USE FOR UNKNOWN INDICATION

REACTIONS (3)
  - CARDIAC TAMPONADE [None]
  - HYPOTENSION [None]
  - MITRAL VALVE INCOMPETENCE [None]
